FAERS Safety Report 7077674 (Version 2)
Quarter: 2014Q3

REPORT INFORMATION
  Report Type: Spontaneous
  Country: US (occurrence: None)
  Receive Date: 20090803
  Receipt Date: 20140806
  Transmission Date: 20150326
  Serious: Yes (Hospitalization, Other)
  Sender: FDA-Public Use
  Company Number: 2009S1005936

PATIENT
  Age: 69 Year
  Sex: Female
  Weight: 62 kg

DRUGS (13)
  1. ZANTAC [Concomitant]
     Active Substance: RANITIDINE HYDROCHLORIDE
  2. DIOVAN [Concomitant]
     Active Substance: VALSARTAN
  3. NORVASC [Concomitant]
     Active Substance: AMLODIPINE BESYLATE
  4. NASONEX [Concomitant]
     Active Substance: MOMETASONE FUROATE
  5. AMITRIPTYLINE (AMITRIPTYLINE) [Concomitant]
     Active Substance: AMITRIPTYLINE
  6. VYTORIN (SIMVASTATIN, EZETIMIBE) [Concomitant]
  7. PHOSPHO-SODA [Suspect]
     Active Substance: SODIUM PHOSPHATE, DIBASIC\SODIUM PHOSPHATE, MONOBASIC
     Indication: COLONOSCOPY
     Dosage: PO
     Route: 048
     Dates: start: 20070715, end: 20070715
  8. ADVAIR (FLUTICASONE PROPIONATE, SALMETEROL XINAFOATE) (INHALANT) [Concomitant]
  9. PLAVIX (CLOPIDOGREL BISULFATE) [Concomitant]
  10. COMBIVENT (IPRATROPIUM BROMDIE, SALBUTAMOL SULFATE) (INHALANT) [Concomitant]
  11. CHLOROTHIAZIDE (CHLOROTHIAZIDE) [Concomitant]
     Active Substance: CHLOROTHIAZIDE
  12. LEVOTHYROXINE (LEVOTHYROXINE) [Concomitant]
     Active Substance: LEVOTHYROXINE
  13. REQUIP [Concomitant]
     Active Substance: ROPINIROLE HYDROCHLORIDE

REACTIONS (9)
  - Renal tubular necrosis [None]
  - Nephrogenic anaemia [None]
  - Blood calcium decreased [None]
  - Hypovolaemia [None]
  - Metabolic acidosis [None]
  - Blood potassium decreased [None]
  - Blood parathyroid hormone increased [None]
  - Renal failure chronic [None]
  - Hyponatraemia [None]

NARRATIVE: CASE EVENT DATE: 20070802
